FAERS Safety Report 8003027-6 (Version None)
Quarter: 2011Q4

REPORT INFORMATION
  Report Type: 
  Country: None (occurrence: None)
  Receive Date: 20111222
  Receipt Date: 20110921
  Transmission Date: 20120403
  Serious: No
  Sender: FDA-Public Use
  Company Number: US-GLAXOSMITHKLINE-A0945472A

PATIENT
  Age: 71 Year
  Sex: Male

DRUGS (8)
  1. CARAFATE [Concomitant]
  2. AVODART [Suspect]
     Indication: PROSTATOMEGALY
     Dosage: 1CAP PER DAY
     Route: 048
     Dates: start: 20070101
  3. PEPCID [Concomitant]
  4. FLOMAX [Suspect]
  5. FOOD [Suspect]
     Route: 048
     Dates: start: 20110920
  6. ASPIRIN [Concomitant]
  7. MELATONIN [Concomitant]
  8. DOMPERIDONE [Concomitant]

REACTIONS (3)
  - FOOD INTERACTION [None]
  - GASTRIC DISORDER [None]
  - MUSCULAR WEAKNESS [None]
